FAERS Safety Report 5038111-2 (Version None)
Quarter: 2006Q2

REPORT INFORMATION
  Report Type: 
  Country: None (occurrence: None)
  Receive Date: 20060602
  Receipt Date: 20060414
  Transmission Date: 20061013
  Serious: Yes (Life-Threatening, Hospitalization, Disabling)
  Sender: FDA-Public Use
  Company Number: 2006-0009462

PATIENT
  Age: 42 Year
  Sex: Male
  Weight: 58.9676 kg

DRUGS (11)
  1. TRUVADA [Suspect]
     Indication: HIV INFECTION
     Dosage: 1 DOSAGE FORMS, 1 IN 1 D, ORAL
     Route: 048
     Dates: start: 20041019, end: 20050809
  2. REYATAZ (ATAZANAVIR SULFATE) (150 MG) [Concomitant]
  3. NORVIR [Concomitant]
  4. BACTRIM DS [Concomitant]
  5. CYMBALTA [Concomitant]
  6. LORATADINE [Concomitant]
  7. MARINOL [Concomitant]
  8. KLONOPIN [Concomitant]
  9. ZANTAC [Concomitant]
  10. TRAZODONE HCL [Concomitant]
  11. REGLAN [Concomitant]

REACTIONS (2)
  - FANCONI SYNDROME ACQUIRED [None]
  - RENAL FAILURE ACUTE [None]
